FAERS Safety Report 4861814-7 (Version None)
Quarter: 2005Q4

REPORT INFORMATION
  Report Type: 
  Country: None (occurrence: None)
  Receive Date: 20051129
  Receipt Date: 20050908
  Transmission Date: 20060501
  Serious: Yes (Hospitalization, Other)
  Sender: FDA-Public Use
  Company Number: USA0509107613

PATIENT
  Age: 29 Year
  Sex: Male
  Weight: 68 kg

DRUGS (1)
  1. ZYPREXA [Suspect]
     Indication: SELECTIVE MUTISM
     Dosage: 5 MG/3
     Dates: start: 20050906, end: 20050906

REACTIONS (2)
  - DRUG INEFFECTIVE [None]
  - PANCREATITIS [None]
